FAERS Safety Report 20684507 (Version 5)
Quarter: 2022Q2

REPORT INFORMATION
  Report Type: Spontaneous
  Country: IN (occurrence: IN)
  Receive Date: 20220407
  Receipt Date: 20220603
  Transmission Date: 20220721
  Serious: Yes (Hospitalization, Other)
  Sender: FDA-Public Use
  Company Number: IN-PFIZER INC-2021713412

PATIENT
  Age: 67 Year
  Sex: Male
  Weight: 63.2 kg

DRUGS (11)
  1. DACOMITINIB [Suspect]
     Active Substance: DACOMITINIB
     Indication: Lung adenocarcinoma
     Dosage: 30 MG, DAILY
     Route: 048
     Dates: start: 20210615
  2. DACOMITINIB [Suspect]
     Active Substance: DACOMITINIB
     Dosage: 30 MG, 1X/DAY
     Route: 048
     Dates: start: 20210616
  3. FAMOTIDINE [Concomitant]
     Active Substance: FAMOTIDINE
     Dosage: 20 MG, AS NEEDED (BDAC)
  4. HYDROCORTISONE [Concomitant]
     Active Substance: HYDROCORTISONE
     Indication: Rash
     Dosage: UNK, APPLY LOCALLY
     Route: 061
  5. DOXYCYCLINE [Concomitant]
     Active Substance: DOXYCYCLINE
     Dosage: 100 MG, 1X/DAY
  6. LOPERAMIDE [Concomitant]
     Active Substance: LOPERAMIDE
     Indication: Diarrhoea
     Dosage: 2 MG, AS NEEDED
  7. ULTRACET [Concomitant]
     Active Substance: ACETAMINOPHEN\TRAMADOL HYDROCHLORIDE
     Indication: Pain
     Dosage: UNK, AS NEEDED
  8. COREX [Concomitant]
     Indication: Cough
     Dosage: 2 TSF, AS NEEDED
  9. URIMAX [TAMSULOSIN HYDROCHLORIDE] [Concomitant]
     Dosage: 0.4 MG, 1X/DAY (BEDTIME)
  10. RANITIDINE HYDROCHLORIDE [Concomitant]
     Active Substance: RANITIDINE HYDROCHLORIDE
     Dosage: 150 MG, AS NEEDED (BDAC)
  11. MEGEETRON [Concomitant]
     Dosage: 160 MG, 2X/DAY

REACTIONS (11)
  - Carcinoembryonic antigen increased [Unknown]
  - Vertigo [Recovering/Resolving]
  - Balance disorder [Recovering/Resolving]
  - Asthenia [Unknown]
  - Neoplasm progression [Unknown]
  - Vomiting [Unknown]
  - Headache [Not Recovered/Not Resolved]
  - Dyspepsia [Unknown]
  - Abdominal pain [Unknown]
  - Nausea [Unknown]
  - General physical health deterioration [Unknown]

NARRATIVE: CASE EVENT DATE: 20210701
